FAERS Safety Report 24339261 (Version 1)
Quarter: 2024Q3

REPORT INFORMATION
  Report Type: Spontaneous
  Country: US (occurrence: None)
  Receive Date: 20240919
  Receipt Date: 20240919
  Transmission Date: 20241017
  Serious: Yes (Hospitalization)
  Sender: Public
  Company Number: None

PATIENT
  Age: 33 Year
  Sex: Male
  Weight: 84.5 kg

DRUGS (4)
  1. CYTARABINE [Suspect]
     Active Substance: CYTARABINE
     Dates: end: 20240201
  2. DARATUMUMAB\HYALURONIDASE-FIHJ [Suspect]
     Active Substance: DARATUMUMAB\HYALURONIDASE-FIHJ
     Dates: end: 20240129
  3. METHOTREXATE [Suspect]
     Active Substance: METHOTREXATE
     Dates: end: 20240130
  4. HYDROCORTISONE [Concomitant]
     Active Substance: HYDROCORTISONE\HYDROCORTISONE ACETATE

REACTIONS (7)
  - Stem cell transplant [None]
  - Febrile neutropenia [None]
  - Sinus tachycardia [None]
  - Oropharyngeal pain [None]
  - Vision blurred [None]
  - Conjunctival disorder [None]
  - Tonsillitis [None]

NARRATIVE: CASE EVENT DATE: 20240206
